FAERS Safety Report 20214233 (Version 1)
Quarter: 2021Q4

REPORT INFORMATION
  Report Type: Spontaneous
  Country: RO (occurrence: RO)
  Receive Date: 20211221
  Receipt Date: 20211221
  Transmission Date: 20220303
  Serious: Yes (Other)
  Sender: FDA-Public Use
  Company Number: RO-MYLANLABS-2021M1082180

PATIENT
  Age: 59 Year
  Sex: Female

DRUGS (1)
  1. ADALIMUMAB [Suspect]
     Active Substance: ADALIMUMAB
     Indication: Colitis ulcerative
     Dosage: 40 MILLIGRAM, Q2W
     Route: 065
     Dates: start: 201908

REACTIONS (5)
  - Arthralgia [Unknown]
  - Drug specific antibody present [Unknown]
  - Drug ineffective [Unknown]
  - Back pain [Unknown]
  - Colitis ulcerative [Recovering/Resolving]
